FAERS Safety Report 15494636 (Version 1)
Quarter: 2018Q4

REPORT INFORMATION
  Report Type: Report from Study
  Country: CO (occurrence: CO)
  Receive Date: 20181012
  Receipt Date: 20181012
  Transmission Date: 20190205
  Serious: Yes (Hospitalization)
  Sender: FDA-Public Use
  Company Number: PHHY2018CO121960

PATIENT
  Age: 63 Year
  Sex: Male
  Weight: 65 kg

DRUGS (2)
  1. TASIGNA [Suspect]
     Active Substance: NILOTINIB
     Dosage: 600 MG, QD
     Route: 048
  2. TASIGNA [Suspect]
     Active Substance: NILOTINIB
     Indication: CHRONIC MYELOID LEUKAEMIA
     Dosage: 800 MG, QD
     Route: 048

REACTIONS (5)
  - Blood glucose increased [Unknown]
  - Inappropriate schedule of product administration [Unknown]
  - Blood pressure abnormal [Unknown]
  - Product prescribing error [Unknown]
  - Facial paralysis [Unknown]

NARRATIVE: CASE EVENT DATE: 20180919
